FAERS Safety Report 7379764-3 (Version None)
Quarter: 2011Q1

REPORT INFORMATION
  Report Type: 
  Country: None (occurrence: None)
  Receive Date: 20110323
  Receipt Date: 20110323
  Transmission Date: 20110831
  Serious: Yes (Other)
  Sender: FDA-Public Use
  Company Number: None

PATIENT
  Age: 75 Year
  Sex: Female
  Weight: 72.5755 kg

DRUGS (1)
  1. POVIDONE IODINE [Suspect]
     Indication: BLADDER CATHETERISATION
     Dosage: 1 PAD 3-4 TIMES DAILY URETHRAL
     Route: 066
     Dates: start: 20110309, end: 20110321

REACTIONS (4)
  - PRODUCT QUALITY ISSUE [None]
  - BACTERIAL INFECTION [None]
  - BODY TEMPERATURE INCREASED [None]
  - HEART RATE INCREASED [None]
